FAERS Safety Report 17730698 (Version 1)
Quarter: 2020Q2

REPORT INFORMATION
  Report Type: Spontaneous
  Country: US (occurrence: US)
  Receive Date: 20200430
  Receipt Date: 20200430
  Transmission Date: 20200714
  Serious: Yes (Other)
  Sender: FDA-Public Use
  Company Number: US-ROCHE-2588760

PATIENT
  Sex: Female

DRUGS (4)
  1. PREDNISONE. [Suspect]
     Active Substance: PREDNISONE
     Indication: PRODUCT USED FOR UNKNOWN INDICATION
     Route: 065
  2. ESBRIET [Suspect]
     Active Substance: PIRFENIDONE
     Indication: PRODUCT USED FOR UNKNOWN INDICATION
     Route: 065
  3. OFEV [Suspect]
     Active Substance: NINTEDANIB
     Indication: IDIOPATHIC PULMONARY FIBROSIS
     Dosage: 2 EVERY 1 DAY
     Route: 048
     Dates: start: 20180606
  4. ONDANSETRON [Suspect]
     Active Substance: ONDANSETRON
     Indication: VOMITING
     Route: 065

REACTIONS (12)
  - Abdominal discomfort [Recovering/Resolving]
  - Upper respiratory tract infection [Unknown]
  - Respiratory tract infection [Unknown]
  - Dyspnoea exertional [Unknown]
  - Constipation [Unknown]
  - Haemorrhage [Unknown]
  - Limb injury [Unknown]
  - Dysentery [Unknown]
  - Vomiting [Unknown]
  - Nausea [Recovering/Resolving]
  - Diarrhoea [Recovering/Resolving]
  - Productive cough [Unknown]
